FAERS Safety Report 12446879 (Version 1)
Quarter: 2016Q2

REPORT INFORMATION
  Report Type: Spontaneous
  Country: US (occurrence: None)
  Receive Date: 20160607
  Receipt Date: 20160607
  Transmission Date: 20160815
  Serious: Yes (Other)
  Sender: FDA-Public Use
  Company Number: None

PATIENT
  Age: 44 Year
  Sex: Female
  Weight: 71.67 kg

DRUGS (5)
  1. CLARITIN [Concomitant]
     Active Substance: LORATADINE
  2. TYLENOL [Concomitant]
     Active Substance: ACETAMINOPHEN
  3. HYDROCHLOROTHIAZIDE. [Concomitant]
     Active Substance: HYDROCHLOROTHIAZIDE
  4. CLARITHROMYCIN ER 500MG, 500 MG TEVA [Suspect]
     Active Substance: CLARITHROMYCIN
     Indication: SINUSITIS
     Dosage: 2 TABLET(S) TWICE A DAY TAKEN BY MOUTH
     Route: 048
     Dates: start: 20160603, end: 20160604
  5. MOTRIN [Concomitant]
     Active Substance: IBUPROFEN

REACTIONS (5)
  - Headache [None]
  - Paraesthesia oral [None]
  - Swelling face [None]
  - Dysgeusia [None]
  - Nausea [None]

NARRATIVE: CASE EVENT DATE: 20160603
